FAERS Safety Report 13345962 (Version 2)
Quarter: 2017Q2

REPORT INFORMATION
  Report Type: Spontaneous
  Country: JP (occurrence: JP)
  Receive Date: 20170317
  Receipt Date: 20170426
  Transmission Date: 20170830
  Serious: Yes (Other)
  Sender: FDA-Public Use
  Company Number: JP-BIOCRYST PHARMACEUTICALS, INC.-2017BCR00082

PATIENT
  Age: 81 Year
  Sex: Female

DRUGS (7)
  1. RAPIACTA [Suspect]
     Active Substance: PERAMIVIR
     Indication: INFLUENZA
     Dosage: 300 MG, UNK
     Route: 042
     Dates: start: 20170210, end: 20170210
  2. CALONAL [Suspect]
     Active Substance: ACETAMINOPHEN
     Indication: INFLUENZA
     Dosage: UNK
     Route: 048
     Dates: start: 20170210, end: 20170217
  3. DONEPEZIL HYDROCHLORIDE OD [Concomitant]
     Indication: DEMENTIA ALZHEIMER^S TYPE
     Dosage: 3 MG, 1X/DAY
     Route: 048
     Dates: start: 20160415
  4. CRESTOR [Concomitant]
     Active Substance: ROSUVASTATIN CALCIUM
     Indication: HYPERCHOLESTEROLAEMIA
     Dosage: 5 MG, 1X/DAY
     Route: 048
     Dates: start: 20130322
  5. MEMARY OD [Concomitant]
     Active Substance: MEMANTINE HYDROCHLORIDE
     Indication: DEMENTIA ALZHEIMER^S TYPE
     Dosage: 20 MG, 1X/DAY
     Route: 048
     Dates: start: 20120803
  6. ONGLYZA [Concomitant]
     Active Substance: SAXAGLIPTIN HYDROCHLORIDE
     Indication: TYPE 2 DIABETES MELLITUS
     Dosage: 5 MG, 1X/DAY
     Route: 048
     Dates: start: 20150612
  7. AZILVA [Concomitant]
     Active Substance: AZILSARTAN KAMEDOXOMIL
     Indication: HYPERTENSION
     Dosage: 20 MG, 1X/DAY
     Route: 048
     Dates: start: 20131206

REACTIONS (4)
  - Nausea [Recovered/Resolved]
  - Wheezing [Recovered/Resolved]
  - Cyanosis [Recovered/Resolved]
  - Cough [Recovered/Resolved]

NARRATIVE: CASE EVENT DATE: 20170210
